FAERS Safety Report 10206689 (Version 1)
Quarter: 2014Q2

REPORT INFORMATION
  Report Type: Spontaneous
  Country: CN (occurrence: None)
  Receive Date: 20140527
  Receipt Date: 20140527
  Transmission Date: 20141212
  Serious: Yes (Hospitalization)
  Sender: FDA-Public Use
  Company Number: CC400218957

PATIENT
  Age: 5 Year
  Sex: Female

DRUGS (1)
  1. CEFTRIAXONE FOR INJ AND DEXTROSE INJ (MANUF UNKNOWN) [Suspect]

REACTIONS (4)
  - Renal failure acute [None]
  - Hydronephrosis [None]
  - Cholelithiasis [None]
  - Calculus ureteric [None]
